FAERS Safety Report 9023890 (Version 1)
Quarter: 2013Q1

REPORT INFORMATION
  Report Type: Spontaneous
  Country: FR (occurrence: FR)
  Receive Date: 20130121
  Receipt Date: 20130121
  Transmission Date: 20140127
  Serious: Yes (Hospitalization, Other)
  Sender: FDA-Public Use
  Company Number: FR-JNJFOC-20130105279

PATIENT
  Age: 76 None
  Sex: Male

DRUGS (12)
  1. XARELTO [Suspect]
     Indication: KNEE ARTHROPLASTY
     Route: 048
  2. XARELTO [Suspect]
     Indication: KNEE ARTHROPLASTY
     Route: 048
     Dates: start: 20121110, end: 20121116
  3. XARELTO [Suspect]
     Indication: THROMBOSIS PROPHYLAXIS
     Route: 048
     Dates: start: 20121110, end: 20121116
  4. XARELTO [Suspect]
     Indication: THROMBOSIS PROPHYLAXIS
     Route: 048
  5. PROFENID [Concomitant]
     Route: 048
  6. TOPALGIC LP [Concomitant]
     Route: 048
     Dates: start: 20121208
  7. SPIRIVA [Concomitant]
     Route: 055
  8. DAFALGAN [Concomitant]
     Route: 048
  9. JOSIR [Concomitant]
     Route: 048
  10. SERETIDE DISKUS [Concomitant]
     Route: 055
  11. ACTISKENAN [Concomitant]
     Route: 048
     Dates: start: 20121208
  12. INEXIUM [Concomitant]
     Route: 048

REACTIONS (2)
  - Venous thrombosis [Recovering/Resolving]
  - Drug ineffective [Recovering/Resolving]
